FAERS Safety Report 4445640-9 (Version None)
Quarter: 2004Q3

REPORT INFORMATION
  Report Type: 
  Country: None (occurrence: None)
  Receive Date: 20040910
  Receipt Date: 20040901
  Transmission Date: 20050211
  Serious: Yes (Other)
  Sender: FDA-Public Use
  Company Number: JP-JNJFOC-20040800648

PATIENT
  Age: 42 Year
  Sex: Female

DRUGS (3)
  1. ITRIZOLE [Suspect]
     Dosage: PULSE THERAPY 400MG/DAY
     Route: 049
     Dates: start: 20040528, end: 20040701
  2. ITRIZOLE [Suspect]
     Indication: ONYCHOMYCOSIS
     Route: 049
     Dates: start: 20040528, end: 20040701
  3. CLOTRIMAZOLE [Concomitant]
     Route: 065

REACTIONS (1)
  - HEPATITIS C [None]
